FAERS Safety Report 21217270 (Version 1)
Quarter: 2022Q3

REPORT INFORMATION
  Report Type: Report from Study
  Country: FR (occurrence: FR)
  Receive Date: 20220816
  Receipt Date: 20220816
  Transmission Date: 20221027
  Serious: Yes (Life-Threatening)
  Sender: FDA-Public Use
  Company Number: FR-NORDICGR-2022002141

PATIENT
  Age: 63 Year
  Sex: Male
  Weight: 85 kg

DRUGS (8)
  1. TRASYLOL [Suspect]
     Active Substance: APROTININ
     Indication: Aortic dissection
     Dosage: 350 MILLILITRE TOTAL LOADING DOSE 1 MILLION KIU PUMP PRIMING DOSE 1 M KIU CONTINUOUS INFUSION DOSE 1
     Route: 042
     Dates: start: 20190329, end: 20190329
  2. HEPARIN [Concomitant]
     Active Substance: HEPARIN SODIUM
     Indication: Anticoagulant therapy
     Dosage: 50 KILO-INTERNATIONAL UNIT DURING SURGERY
     Route: 042
     Dates: start: 20190329, end: 20190329
  3. COAGULATION FACTOR VIIA HUMAN [Concomitant]
     Active Substance: COAGULATION FACTOR VIIA HUMAN
     Indication: Haemostasis
     Dosage: UNK
     Route: 042
     Dates: start: 20190329
  4. HUMAN RED BLOOD CELL [Concomitant]
     Active Substance: HUMAN RED BLOOD CELL
     Indication: Transfusion
     Dosage: 4630 MILLILITRE TOTAL INTRAOPERATIVELY AND UP TO 48 HOURS AFTER SURGERY
     Route: 042
     Dates: start: 20190329
  5. PLATELETS [Concomitant]
     Active Substance: HUMAN PLATELET, ALLOGENIC
     Indication: Transfusion
     Dosage: 1783 MILLILITRE TOTAL INTRAOPERATIVELY AND UP TO 48 HOURS AFTER SURGERY
     Route: 042
     Dates: start: 20190329
  6. FRESH FROZEN PLASMA [Concomitant]
     Active Substance: HUMAN PLASMA
     Indication: Transfusion
     Dosage: 4904 MILLILITRE TOTAL INTRAOPERATIVELY AND UP TO 48 HOURS AFTER SURGERY
     Route: 042
     Dates: start: 20190429
  7. PROTHROMBIN COMPLEX CONCENTRATE NOS [Concomitant]
     Active Substance: COAGULATION FACTOR IX HUMAN\COAGULATION FACTOR VII HUMAN\COAGULATION FACTOR X HUMAN\PROTHROMBIN
     Indication: Transfusion
     Dosage: 5500 MILLILITRE TOTAL INTRAOPERATIVELY AND UP TO 48 HOURS AFTER SURGERY
     Route: 042
     Dates: start: 20190329
  8. FIBRINOGEN [Concomitant]
     Active Substance: FIBRINOGEN HUMAN
     Indication: Transfusion
     Dosage: 12 GRAM TOTAL INTRAOPERATIVELY AND UP TO 48 HOURS AFTER SURGERY
     Route: 042
     Dates: start: 20190329

REACTIONS (4)
  - Ischaemic stroke [Recovered/Resolved]
  - Colitis ischaemic [Recovering/Resolving]
  - Product use in unapproved indication [Unknown]
  - Off label use [None]

NARRATIVE: CASE EVENT DATE: 20190329
